FAERS Safety Report 5123261-2 (Version None)
Quarter: 2006Q4

REPORT INFORMATION
  Report Type: 
  Country: None (occurrence: None)
  Receive Date: 20061009
  Receipt Date: 20061006
  Transmission Date: 20070319
  Serious: Yes (Death, Hospitalization)
  Sender: FDA-Public Use
  Company Number: US-GLAXOSMITHKLINE-A0622778A

PATIENT
  Age: 47 Year
  Sex: Female

DRUGS (10)
  1. WELLBUTRIN [Suspect]
     Indication: MIGRAINE PROPHYLAXIS
     Dosage: 450MG PER DAY
     Route: 048
     Dates: start: 20040101
  2. ZONEGRAN [Concomitant]
  3. ZANAFLEX [Concomitant]
  4. SYNTHROID [Concomitant]
  5. CYMBALTA [Concomitant]
  6. CLARITIN [Concomitant]
  7. IRON [Concomitant]
  8. B-12 [Concomitant]
  9. TUMS [Concomitant]
  10. MULTI-VITAMIN [Concomitant]

REACTIONS (5)
  - BLOOD ALCOHOL INCREASED [None]
  - COMPLETED SUICIDE [None]
  - CYANOSIS [None]
  - LOSS OF CONSCIOUSNESS [None]
  - PHARMACEUTICAL PRODUCT COMPLAINT [None]
